FAERS Safety Report 18757238 (Version 1)
Quarter: 2021Q1

REPORT INFORMATION
  Report Type: Spontaneous
  Country: US (occurrence: US)
  Receive Date: 20210119
  Receipt Date: 20210119
  Transmission Date: 20210419
  Serious: Yes (Hospitalization, Other)
  Sender: FDA-Public Use
  Company Number: US-INSUD PHARMA-2101US00005

PATIENT

DRUGS (3)
  1. TESTOSTERONE. [Suspect]
     Active Substance: TESTOSTERONE
     Indication: MUSCLE BUILDING THERAPY
     Dosage: WEEKLY INJECTIONS
     Route: 030
  2. PROTEINS NOS [Suspect]
     Active Substance: PROTEIN
     Indication: MUSCLE BUILDING THERAPY
     Dosage: HIGH?PROTEIN DIET FOR THE PAST 5 YEARS
  3. TESTOSTERONE BOOSTERS [Suspect]
     Active Substance: TESTOSTERONE
     Indication: MUSCLE BUILDING THERAPY
     Dosage: UNK
     Route: 065

REACTIONS (14)
  - Chronic kidney disease [Not Recovered/Not Resolved]
  - Dyspnoea exertional [Unknown]
  - Kidney fibrosis [Unknown]
  - Glomerulosclerosis [Unknown]
  - Rhabdomyolysis [Unknown]
  - Peripheral swelling [Unknown]
  - Vascular hyalinosis [Unknown]
  - Drug abuse [Not Recovered/Not Resolved]
  - Haemoptysis [Unknown]
  - Proteinuria [Unknown]
  - Acute kidney injury [Recovered/Resolved with Sequelae]
  - Renal tubular atrophy [Unknown]
  - Pneumonia [Unknown]
  - Renal arteriosclerosis [Unknown]
